FAERS Safety Report 5259564-0 (Version None)
Quarter: 2007Q1

REPORT INFORMATION
  Report Type: 
  Country: None (occurrence: None)
  Receive Date: 20070306
  Receipt Date: 20070223
  Transmission Date: 20070707
  Serious: Yes (Other)
  Sender: FDA-Public Use
  Company Number: 2007AL000810

PATIENT
  Sex: Female

DRUGS (6)
  1. DIAZEPAM [Suspect]
  2. TEMAZEPAM CAPSULES (30 MG (PUREPAC) (TEMAXEPAM CAPSULES, 30 MG (PUREPA [Suspect]
  3. PAROXETINE HCL [Concomitant]
  4. DOSULEPIN [Concomitant]
  5. PROTHIADEN [Concomitant]
  6. LOFEPRAMINE [Concomitant]

REACTIONS (6)
  - AGGRESSION [None]
  - DRUG WITHDRAWAL SYNDROME [None]
  - OVERDOSE [None]
  - SUICIDAL IDEATION [None]
  - TREATMENT NONCOMPLIANCE [None]
  - UNDERDOSE [None]
